FAERS Safety Report 9867379 (Version 1)
Quarter: 2014Q1

REPORT INFORMATION
  Report Type: Spontaneous
  Country: IT (occurrence: IT)
  Receive Date: 20140204
  Receipt Date: 20140204
  Transmission Date: 20141002
  Serious: Yes (Life-Threatening)
  Sender: FDA-Public Use
  Company Number: IT-BAYER-2014-017613

PATIENT
  Age: 71 Year
  Sex: Male

DRUGS (8)
  1. CARDIOASPIRIN [Suspect]
     Indication: PLATELET AGGREGATION INHIBITION
     Dosage: DAILY DOSE 100 MG
     Route: 048
     Dates: end: 20140123
  2. SINEMET [Concomitant]
  3. ISOPTIN [Concomitant]
  4. QUETIAPINE [Concomitant]
  5. PRASTEROL [Concomitant]
  6. PRADIF [Concomitant]
  7. AVODART [Concomitant]
  8. BIFRIZIDE [Concomitant]

REACTIONS (3)
  - Asthenia [Not Recovered/Not Resolved]
  - Cerebral haemorrhage [Not Recovered/Not Resolved]
  - Disorientation [Not Recovered/Not Resolved]
